FAERS Safety Report 22245442 (Version 2)
Quarter: 2023Q2

REPORT INFORMATION
  Report Type: Spontaneous
  Country: JP (occurrence: JP)
  Receive Date: 20230424
  Receipt Date: 20230515
  Transmission Date: 20230721
  Serious: Yes (Death, Other)
  Sender: FDA-Public Use
  Company Number: JP-VIIV HEALTHCARE UK LIMITED-JP2023JPN058320

PATIENT

DRUGS (2)
  1. VOCABRIA [Suspect]
     Active Substance: CABOTEGRAVIR SODIUM
     Indication: HIV infection
     Dosage: 600 MG
     Route: 030
     Dates: start: 20230407, end: 20230420
  2. RILPIVIRINE [Suspect]
     Active Substance: RILPIVIRINE
     Indication: HIV infection
     Dosage: 900 MG
     Route: 030
     Dates: start: 20230407, end: 20230420

REACTIONS (1)
  - Lung neoplasm malignant [Fatal]
